FAERS Safety Report 5290991-1 (Version None)
Quarter: 2007Q2

REPORT INFORMATION
  Report Type: 
  Country: None (occurrence: None)
  Receive Date: 20070405
  Receipt Date: 20070405
  Transmission Date: 20071010
  Serious: Yes (Hospitalization)
  Sender: FDA-Public Use
  Company Number: None

PATIENT
  Sex: Female
  Weight: 99.7913 kg

DRUGS (1)
  1. VELCADE [Suspect]
     Indication: LUNG NEOPLASM MALIGNANT
     Dosage: 1.7 2 X WEEK IV
     Route: 042
     Dates: start: 20070220, end: 20070316

REACTIONS (2)
  - DISEASE PROGRESSION [None]
  - DYSPNOEA [None]
